FAERS Safety Report 18901391 (Version 2)
Quarter: 2021Q2

REPORT INFORMATION
  Report Type: Report from Study
  Country: US (occurrence: US)
  Receive Date: 20210216
  Receipt Date: 20210428
  Transmission Date: 20210717
  Serious: Yes (Life-Threatening, Hospitalization, Other)
  Sender: FDA-Public Use
  Company Number: US-JNJFOC-20210223027

PATIENT
  Age: 56 Year
  Sex: Female
  Weight: 118.49 kg

DRUGS (5)
  1. SPRAVATO [Suspect]
     Active Substance: ESKETAMINE
     Dates: start: 20210209, end: 20210209
  2. ASCORBIC ACID. [Concomitant]
     Active Substance: ASCORBIC ACID
     Route: 048
     Dates: start: 20080811
  3. SPRAVATO [Suspect]
     Active Substance: ESKETAMINE
     Indication: DEPRESSION
     Dates: start: 20210105, end: 20210105
  4. SPRAVATO [Suspect]
     Active Substance: ESKETAMINE
     Dates: start: 20210119, end: 20210119
  5. SPRAVATO [Suspect]
     Active Substance: ESKETAMINE
     Dosage: TOTAL NUMBER OF DOSES 100
     Dates: start: 2018

REACTIONS (3)
  - Breast cancer [Unknown]
  - Acute respiratory failure [Recovered/Resolved with Sequelae]
  - Anaesthetic complication pulmonary [Recovered/Resolved]

NARRATIVE: CASE EVENT DATE: 20210122
